FAERS Safety Report 17145227 (Version 1)
Quarter: 2019Q4

REPORT INFORMATION
  Report Type: Spontaneous
  Country: US (occurrence: US)
  Receive Date: 20191211
  Receipt Date: 20191211
  Transmission Date: 20200122
  Serious: Yes (Life-Threatening, Hospitalization)
  Sender: FDA-Public Use
  Company Number: None

PATIENT
  Age: 67 Year
  Sex: Female
  Weight: 85.2 kg

DRUGS (1)
  1. EVEROLIMUS. [Suspect]
     Active Substance: EVEROLIMUS
     Indication: BREAST CANCER METASTATIC
     Route: 048

REACTIONS (7)
  - Pyrexia [None]
  - Syncope [None]
  - Dyspnoea [None]
  - Cough [None]
  - Oedema [None]
  - Pleural effusion [None]
  - Disease complication [None]

NARRATIVE: CASE EVENT DATE: 20190728
